FAERS Safety Report 14128178 (Version 1)
Quarter: 2017Q4

REPORT INFORMATION
  Report Type: Spontaneous
  Country: US (occurrence: US)
  Receive Date: 20171025
  Receipt Date: 20171025
  Transmission Date: 20180321
  Serious: Yes (Hospitalization)
  Sender: FDA-Public Use
  Company Number: None

PATIENT
  Age: 100 Year
  Sex: Female
  Weight: 78.5 kg

DRUGS (1)
  1. ORITAVANCIN. [Suspect]
     Active Substance: ORITAVANCIN
     Indication: OSTEOMYELITIS
     Dosage: ?          OTHER FREQUENCY:ONCE;?
     Route: 042
     Dates: start: 20171024, end: 20171024

REACTIONS (6)
  - Blood pressure decreased [None]
  - Chills [None]
  - Tremor [None]
  - Wheezing [None]
  - Heart rate decreased [None]
  - Respiratory rate decreased [None]

NARRATIVE: CASE EVENT DATE: 20171024
